FAERS Safety Report 5526846-4 (Version None)
Quarter: 2007Q4

REPORT INFORMATION
  Report Type: 
  Country: None (occurrence: None)
  Receive Date: 20071127
  Receipt Date: 20071115
  Transmission Date: 20080405
  Serious: Yes (Other)
  Sender: FDA-Public Use
  Company Number: US-PFIZER INC-2007097593

PATIENT
  Sex: Female
  Weight: 106.6 kg

DRUGS (4)
  1. CHANTIX [Suspect]
     Indication: SMOKING CESSATION THERAPY
     Route: 048
  2. ATARAX [Suspect]
     Indication: URTICARIA
  3. CLONAZEPAM [Suspect]
     Indication: NERVOUSNESS
  4. BENADRYL [Concomitant]

REACTIONS (10)
  - ALLERGY TO METALS [None]
  - DRUG INEFFECTIVE [None]
  - HIP ARTHROPLASTY [None]
  - KNEE ARTHROPLASTY [None]
  - MEDICATION ERROR [None]
  - NEOPLASM MALIGNANT [None]
  - NERVOUSNESS [None]
  - RENAL DISORDER [None]
  - SOMNOLENCE [None]
  - URTICARIA [None]
